FAERS Safety Report 9254121 (Version 1)
Quarter: 2013Q2

REPORT INFORMATION
  Report Type: Spontaneous
  Country: IT (occurrence: IT)
  Receive Date: 20130425
  Receipt Date: 20130425
  Transmission Date: 20140414
  Serious: Yes (Hospitalization)
  Sender: FDA-Public Use
  Company Number: IT-JNJFOC-20130409482

PATIENT
  Age: 65 Year
  Sex: Female

DRUGS (3)
  1. SERENASE [Suspect]
     Indication: PSYCHOTIC DISORDER
     Route: 048
     Dates: start: 20130316, end: 20130317
  2. TAVOR [Suspect]
     Indication: PSYCHOTIC DISORDER
     Route: 048
     Dates: start: 20130316, end: 20130317
  3. PAROXETINE MESILATE [Concomitant]
     Indication: ADJUSTMENT DISORDER WITH DEPRESSED MOOD
     Route: 048

REACTIONS (2)
  - Dystonia [Recovered/Resolved]
  - Paraesthesia oral [Recovered/Resolved]
